FAERS Safety Report 12096205 (Version 1)
Quarter: 2016Q1

REPORT INFORMATION
  Report Type: Other
  Country: US (occurrence: US)
  Receive Date: 20160220
  Receipt Date: 20160220
  Transmission Date: 20160526
  Serious: No
  Sender: FDA-Public Use
  Company Number: US-ACORDA-ACO_110124_2015

PATIENT
  Sex: Female

DRUGS (21)
  1. PROVIGIL [Concomitant]
     Active Substance: MODAFINIL
  2. AMITRIPTYLINE [Concomitant]
     Active Substance: AMITRIPTYLINE
  3. EXLAX [Concomitant]
  4. SIMVASTATIN. [Concomitant]
     Active Substance: SIMVASTATIN
  5. REBIF [Concomitant]
     Active Substance: INTERFERON BETA-1A
  6. AMPYRA [Suspect]
     Active Substance: DALFAMPRIDINE
     Indication: MULTIPLE SCLEROSIS
     Dosage: 10 MG, BID
     Route: 048
  7. BIOTIN [Concomitant]
     Active Substance: BIOTIN
  8. MVI [Concomitant]
     Active Substance: VITAMINS
  9. FISH OIL [Concomitant]
     Active Substance: FISH OIL
  10. ACTOS [Concomitant]
     Active Substance: PIOGLITAZONE HYDROCHLORIDE
  11. ALPHA LIPOIC ACID [Concomitant]
     Active Substance: .ALPHA.-LIPOIC ACID
  12. DILTIAZEM [Concomitant]
     Active Substance: DILTIAZEM
  13. VITAMIN D [Concomitant]
     Active Substance: CHOLECALCIFEROL
  14. LOSARTAN. [Concomitant]
     Active Substance: LOSARTAN
  15. ASPIRIN. [Concomitant]
     Active Substance: ASPIRIN
  16. CRANBERRY. [Concomitant]
     Active Substance: CRANBERRY
  17. FOLBEE [Concomitant]
     Active Substance: CYANOCOBALAMIN\FOLIC ACID\PYRIDOXINE HYDROCHLORIDE
  18. TRILIPIX [Concomitant]
     Active Substance: FENOFIBRIC ACID
  19. RYTHMOL [Concomitant]
     Active Substance: PROPAFENONE HYDROCHLORIDE
  20. PAIN RELIEVER [Concomitant]
     Active Substance: ACETAMINOPHEN\ASPIRIN\SALICYLAMIDE
  21. PEG-3350 AND ELECTROLYTES [Concomitant]
     Active Substance: POLYETHYLENE GLYCOL 3350\POTASSIUM CHLORIDE\SODIUM BICARBONATE\SODIUM CHLORIDE\SODIUM SULFATE\SODIUM SULFATE ANHYDROUS

REACTIONS (1)
  - Drug ineffective [Unknown]
